FAERS Safety Report 21231943 (Version 1)
Quarter: 2022Q3

REPORT INFORMATION
  Report Type: Report from Study
  Country: DE (occurrence: DE)
  Receive Date: 20220819
  Receipt Date: 20220819
  Transmission Date: 20221027
  Serious: Yes (Death, Other)
  Sender: FDA-Public Use
  Company Number: DE-ALS-000777

PATIENT
  Age: 60 Year
  Sex: Female

DRUGS (3)
  1. METFORMIN [Suspect]
     Active Substance: METFORMIN HYDROCHLORIDE
     Indication: Type 2 diabetes mellitus
     Dosage: 1,500-3,000 MG OR MAXIMUM TOLERATED DOSE
     Route: 065
  2. INSULIN GLARGINE [Suspect]
     Active Substance: INSULIN GLARGINE
     Indication: Type 2 diabetes mellitus
     Dosage: ONCE-DAILY IGLAR (U100).
     Route: 058
  3. INSULIN ASPART [Concomitant]
     Active Substance: INSULIN ASPART
     Indication: Type 2 diabetes mellitus
     Dosage: INITIATED AT 4 U, MEALTIME
     Route: 065

REACTIONS (4)
  - Cardiopulmonary failure [Fatal]
  - COVID-19 pneumonia [Fatal]
  - Cardiac arrest [Fatal]
  - Drug ineffective [Unknown]
